FAERS Safety Report 8422003-2 (Version None)
Quarter: 2012Q2

REPORT INFORMATION
  Report Type: 
  Country: None (occurrence: None)
  Receive Date: 20120608
  Receipt Date: 20120506
  Transmission Date: 20120825
  Serious: No
  Sender: FDA-Public Use
  Company Number: US-BAYER-2012-045322

PATIENT
  Age: 51 Year
  Sex: Male
  Weight: 68 kg

DRUGS (1)
  1. ALEVE (CAPLET) [Suspect]
     Indication: OEDEMA PERIPHERAL
     Dosage: DAILY DOSE 1320 MG
     Route: 048
     Dates: start: 20120505

REACTIONS (1)
  - DYSPNOEA [None]
